FAERS Safety Report 12331126 (Version 1)
Quarter: 2016Q2

REPORT INFORMATION
  Report Type: Report from Study
  Country: FR (occurrence: FR)
  Receive Date: 20160504
  Receipt Date: 20160504
  Transmission Date: 20160815
  Serious: Yes (Hospitalization, Other)
  Sender: FDA-Public Use
  Company Number: FR-TAIHO ONCOLOGY INC-JPTT160328

PATIENT
  Age: 63 Year
  Sex: Female
  Weight: 76 kg

DRUGS (3)
  1. LONSURF [Suspect]
     Active Substance: TIPIRACIL HYDROCHLORIDE\TRIFLURIDINE
     Dosage: 65MG, BID ON DAYS 1-5 AND 8-12 OF EACH 28-DAY CYCLE, CYCLE 2
     Route: 048
     Dates: start: 20160127
  2. LONSURF [Suspect]
     Active Substance: TIPIRACIL HYDROCHLORIDE\TRIFLURIDINE
     Indication: RECTAL CANCER
     Dosage: 65MG, BID ON DAYS 1-5 AND 8-12 OF EACH 28-DAY CYCLE, CYCLE 1
     Route: 048
     Dates: start: 20160113
  3. LONSURF [Suspect]
     Active Substance: TIPIRACIL HYDROCHLORIDE\TRIFLURIDINE
     Dosage: 65MG, BID ON DAYS 1-5 AND 8-12 OF EACH 28-DAY CYCLE, CYCLE 3
     Route: 048
     Dates: start: 20160312, end: 20160323

REACTIONS (2)
  - Febrile neutropenia [Recovered/Resolved]
  - Febrile bone marrow aplasia [Recovered/Resolved]

NARRATIVE: CASE EVENT DATE: 2016
